FAERS Safety Report 23920128 (Version 1)
Quarter: 2024Q2

REPORT INFORMATION
  Report Type: Spontaneous
  Country: US (occurrence: None)
  Receive Date: 20240530
  Receipt Date: 20240530
  Transmission Date: 20240715
  Serious: Yes (Hospitalization)
  Sender: FDA-Public Use
  Company Number: None

PATIENT
  Age: 78 Year
  Sex: Male
  Weight: 73 kg

DRUGS (2)
  1. APIXABAN [Suspect]
     Active Substance: APIXABAN
     Dosage: FREQUENCY : TWICE A DAY;?
     Route: 048
     Dates: start: 20230321, end: 20230425
  2. ASPIRIN [Concomitant]
     Dosage: FREQUENCY : DAILY;?
     Route: 048
     Dates: end: 20230505

REACTIONS (7)
  - Anaemia [None]
  - Gastrointestinal haemorrhage [None]
  - Animal bite [None]
  - Atrial fibrillation [None]
  - Oesophagitis [None]
  - Therapy interrupted [None]
  - Melaena [None]

NARRATIVE: CASE EVENT DATE: 20230505
